FAERS Safety Report 10259599 (Version 2)
Quarter: 2014Q2

REPORT INFORMATION
  Report Type: Report from Study
  Country: DE (occurrence: DE)
  Receive Date: 20140625
  Receipt Date: 20140625
  Transmission Date: 20141212
  Serious: Yes (Hospitalization)
  Sender: FDA-Public Use
  Company Number: PHHY2014DE057047

PATIENT
  Age: 70 Year
  Sex: Female

DRUGS (15)
  1. OXALIPLATIN [Suspect]
     Indication: PANCREATIC CARCINOMA
     Dosage: 165 MG, OVER 46 HOURS INFUSION
     Route: 042
     Dates: start: 20140424, end: 20140429
  2. IRINOTECAN [Suspect]
     Indication: PANCREATIC CARCINOMA
     Dosage: 340 MG, UNK
     Route: 042
     Dates: start: 20140424, end: 20140429
  3. 5-FLUOROURACIL [Suspect]
     Indication: PANCREATIC CARCINOMA
     Dosage: 750 MG, UNK
     Route: 042
     Dates: start: 20140424, end: 20140429
  4. 5-FLUOROURACIL [Suspect]
     Dosage: 4500 MG, UNK
     Route: 042
  5. CALCIUM FOLINATE [Suspect]
     Indication: PANCREATIC CARCINOMA
     Dosage: 750 MG, ONCE/SINGLE
     Route: 042
     Dates: start: 20140424
  6. GEMCITABINE [Suspect]
     Indication: PANCREATIC CARCINOMA
     Dosage: 1000 MG/M2, UNK
  7. ERLOTINIB [Suspect]
     Indication: PANCREATIC CARCINOMA
     Dosage: 100 ML, QW
     Route: 048
  8. ESIDRIX [Concomitant]
     Dosage: 25 MG, UNK
  9. DIOVAN [Concomitant]
     Dosage: 160 MG, UNK
     Route: 042
  10. PANTOZOL [Concomitant]
     Dosage: 40 MG, UNK
  11. COTRIM FORTE [Concomitant]
  12. L-THYROXIN [Concomitant]
     Dosage: 125 UG, UNK
  13. NOVALGIN//METAMIZOLE SODIUM [Concomitant]
     Dosage: 80 DRP, UNK
  14. GLANDOMED [Concomitant]
  15. CLEXANE [Concomitant]

REACTIONS (3)
  - Nausea [Recovered/Resolved]
  - Vomiting [Recovered/Resolved]
  - Hypokalaemia [Unknown]
